FAERS Safety Report 9859268 (Version 4)
Quarter: 2014Q2

REPORT INFORMATION
  Report Type: Spontaneous
  Country: JP (occurrence: JP)
  Receive Date: 20140131
  Receipt Date: 20140411
  Transmission Date: 20141212
  Serious: Yes (Other)
  Sender: FDA-Public Use
  Company Number: JP-JNJFOC-20131109129

PATIENT
  Age: 29 Year
  Sex: Female
  Weight: 51 kg

DRUGS (7)
  1. REMICADE [Suspect]
     Indication: COLITIS ULCERATIVE
     Dosage: INDUCTION DOSE (0, 2 AND 6 WEEKS)
     Route: 042
  2. REMICADE [Suspect]
     Indication: COLITIS ULCERATIVE
     Route: 042
     Dates: start: 20101201
  3. BACTRAMIN [Concomitant]
     Indication: INFECTION SUSCEPTIBILITY INCREASED
     Route: 048
     Dates: start: 20090202, end: 20101224
  4. ASACOL [Concomitant]
     Indication: COLITIS ULCERATIVE
     Route: 048
     Dates: start: 20100309
  5. SOL MELCORT [Concomitant]
     Indication: COLITIS ULCERATIVE
     Route: 048
     Dates: start: 20101129, end: 20101201
  6. TAKEPRON [Concomitant]
     Indication: PROPHYLAXIS AGAINST GASTROINTESTINAL ULCER
     Route: 048
     Dates: start: 20101130, end: 20110107
  7. FERRICON [Concomitant]
     Indication: IRON DEFICIENCY ANAEMIA
     Route: 065
     Dates: start: 20101130, end: 20101202

REACTIONS (8)
  - Anaphylactic shock [Recovered/Resolved]
  - Septic shock [Recovered/Resolved]
  - Acute prerenal failure [Unknown]
  - Abdominal pain [Recovering/Resolving]
  - Haematochezia [Recovering/Resolving]
  - Nausea [Recovered/Resolved]
  - Headache [Recovering/Resolving]
  - Dehydration [Unknown]
